FAERS Safety Report 8139581-3 (Version None)
Quarter: 2012Q1

REPORT INFORMATION
  Report Type: 
  Country: None (occurrence: None)
  Receive Date: 20120215
  Receipt Date: 20120202
  Transmission Date: 20120608
  Serious: Yes (Other)
  Sender: FDA-Public Use
  Company Number: PHEH2012US003012

PATIENT
  Sex: Female

DRUGS (1)
  1. OCTREOTIDE ACETATE [Suspect]

REACTIONS (2)
  - LIVER DISORDER [None]
  - ANAPHYLACTIC SHOCK [None]
